FAERS Safety Report 7820636-5 (Version None)
Quarter: 2011Q4

REPORT INFORMATION
  Report Type: 
  Country: None (occurrence: None)
  Receive Date: 20111012
  Receipt Date: 20111003
  Transmission Date: 20120403
  Serious: Yes (Other)
  Sender: FDA-Public Use
  Company Number: HRA-CDB20110083

PATIENT
  Age: 32 Year
  Sex: Female

DRUGS (1)
  1. ELLA [Suspect]
     Indication: CONTRACEPTION
     Dosage: 1 DOSAGE FORMS (1 DOSAGE FORMS, 1IN 1 D),ORAL
     Route: 048
     Dates: start: 20110905, end: 20110905

REACTIONS (2)
  - UNINTENDED PREGNANCY [None]
  - MATERNAL EXPOSURE DURING PREGNANCY [None]
